FAERS Safety Report 5528878-9 (Version None)
Quarter: 2007Q4

REPORT INFORMATION
  Report Type: 
  Country: None (occurrence: None)
  Receive Date: 20071126
  Receipt Date: 20071101
  Transmission Date: 20080405
  Serious: Yes (Other)
  Sender: FDA-Public Use
  Company Number: DK200711000312

PATIENT
  Sex: Female

DRUGS (3)
  1. BYETTA [Suspect]
     Dosage: SUBCUTANEOUS
     Route: 058
  2. EXENATIDE UNK STRENGTH PEN, [Concomitant]
  3. EXENATIDE   UNK STRENGTH PEN, DISPOSABLE [Concomitant]

REACTIONS (1)
  - THROMBOCYTOPENIA [None]
